FAERS Safety Report 4707031-2 (Version None)
Quarter: 2005Q3

REPORT INFORMATION
  Report Type: 
  Country: None (occurrence: None)
  Receive Date: 20050701
  Receipt Date: 20050701
  Transmission Date: 20060218
  Serious: No
  Sender: FDA-Public Use
  Company Number: None

PATIENT
  Age: 61 Year
  Sex: Female
  Weight: 73.9363 kg

DRUGS (6)
  1. ALTOPREV [Suspect]
     Indication: BLOOD CHOLESTEROL INCREASED
     Dosage: 1X DAILY - EV ORAL
     Route: 048
     Dates: start: 20050414, end: 20050630
  2. ALTOPREV [Suspect]
     Indication: LOW DENSITY LIPOPROTEIN INCREASED
     Dosage: 1X DAILY - EV ORAL
     Route: 048
     Dates: start: 20050414, end: 20050630
  3. VIACTIV [Concomitant]
  4. MAGNESIUM [Concomitant]
  5. FOLIC ACID [Concomitant]
  6. MULTI-VITAMIN [Concomitant]

REACTIONS (9)
  - ANGER [None]
  - ANXIETY [None]
  - ARTHROPATHY [None]
  - EYE DISORDER [None]
  - EYE INFLAMMATION [None]
  - EYE IRRITATION [None]
  - MUSCLE SPASMS [None]
  - RENAL PAIN [None]
  - TENDON DISORDER [None]
